FAERS Safety Report 12762586 (Version 2)
Quarter: 2016Q4

REPORT INFORMATION
  Report Type: Report from Study
  Country: US (occurrence: US)
  Receive Date: 20160920
  Receipt Date: 20161020
  Transmission Date: 20170207
  Serious: Yes (Death, Other)
  Sender: FDA-Public Use
  Company Number: US-009507513-1609USA007086

PATIENT
  Age: 83 Year
  Sex: Male
  Weight: 83.9 kg

DRUGS (1)
  1. KEYTRUDA [Suspect]
     Active Substance: PEMBROLIZUMAB
     Dosage: UNK
     Route: 051

REACTIONS (1)
  - Death [Fatal]

NARRATIVE: CASE EVENT DATE: 20160906
